FAERS Safety Report 14602594 (Version 1)
Quarter: 2018Q1

REPORT INFORMATION
  Report Type: Spontaneous
  Country: US (occurrence: US)
  Receive Date: 20180306
  Receipt Date: 20180306
  Transmission Date: 20180509
  Serious: No
  Sender: FDA-Public Use
  Company Number: US-009507513-1803USA001865

PATIENT
  Sex: Female

DRUGS (1)
  1. NEXPLANON [Suspect]
     Active Substance: ETONOGESTREL
     Indication: CONTRACEPTION
     Dosage: 1 DF, EVERY THREE YEARS
     Route: 059
     Dates: start: 20171106

REACTIONS (6)
  - Chest pain [Unknown]
  - Peripheral swelling [Unknown]
  - Breast pain [Unknown]
  - Nausea [Unknown]
  - Migraine [Unknown]
  - Abdominal pain [Unknown]
